FAERS Safety Report 5128317-6 (Version None)
Quarter: 2006Q4

REPORT INFORMATION
  Report Type: 
  Country: None (occurrence: None)
  Receive Date: 20061011
  Receipt Date: 20060921
  Transmission Date: 20070319
  Serious: Yes (Hospitalization)
  Sender: FDA-Public Use
  Company Number: US200609005636

PATIENT
  Age: 41 Year
  Sex: Male

DRUGS (5)
  1. HUMALOG [Suspect]
     Indication: DIABETES MELLITUS
     Dates: start: 19960601
  2. HUMULIN ULTRALENT (HUMAN INSULIN (RDNA ORIGIN) ULTRALENTE) VIAL [Suspect]
     Indication: DIABETES MELLITUS
     Dates: start: 20010101
  3. TOPROL-XL [Concomitant]
  4. ISOSORBIDE (ISOSORBIDE) [Concomitant]
  5. NEXIUM [Concomitant]

REACTIONS (3)
  - CEREBROVASCULAR ACCIDENT [None]
  - STAPHYLOCOCCAL INFECTION [None]
  - STRESS [None]
